FAERS Safety Report 7351224-5 (Version None)
Quarter: 2011Q1

REPORT INFORMATION
  Report Type: 
  Country: None (occurrence: None)
  Receive Date: 20110314
  Receipt Date: 20110304
  Transmission Date: 20110831
  Serious: Yes (Hospitalization)
  Sender: FDA-Public Use
  Company Number: US-MPIJNJ-2011-00153

PATIENT
  Age: 77 Year
  Sex: Female
  Weight: 126.4 kg

DRUGS (2)
  1. VELCADE [Suspect]
     Indication: OVARIAN EPITHELIAL CANCER
     Dosage: 0.5 MG/M2, CYCLIC
     Route: 033
     Dates: start: 20101228, end: 20101228
  2. CARBOPLATIN [Suspect]
     Indication: OVARIAN EPITHELIAL CANCER
     Dosage: UNK
     Route: 033
     Dates: start: 20101228, end: 20101228

REACTIONS (10)
  - NAUSEA [None]
  - VOMITING [None]
  - ATRIAL FIBRILLATION [None]
  - INTERNATIONAL NORMALISED RATIO INCREASED [None]
  - PLATELET COUNT DECREASED [None]
  - PLEURAL EFFUSION [None]
  - WHITE BLOOD CELL COUNT DECREASED [None]
  - URINARY TRACT INFECTION [None]
  - LUNG INFECTION [None]
  - ANAEMIA [None]
